FAERS Safety Report 10061692 (Version 1)
Quarter: 2014Q2

REPORT INFORMATION
  Report Type: Spontaneous
  Country: US (occurrence: US)
  Receive Date: 20140407
  Receipt Date: 20140407
  Transmission Date: 20141212
  Serious: No
  Sender: FDA-Public Use
  Company Number: US-TARO-2013P1019819

PATIENT
  Age: 83 Year
  Sex: Male

DRUGS (3)
  1. FLUOROURACIL TOPICAL CREAM USP 5% [Suspect]
     Indication: ACTINIC KERATOSIS
     Route: 061
     Dates: start: 20130924, end: 20131004
  2. ZOCOR [Concomitant]
  3. HYDROCHLOROTHIAZIDE [Concomitant]

REACTIONS (3)
  - Application site pain [Unknown]
  - Drug ineffective [Not Recovered/Not Resolved]
  - Application site exfoliation [Recovered/Resolved]
